FAERS Safety Report 6555164-0 (Version None)
Quarter: 2010Q1

REPORT INFORMATION
  Report Type: 
  Country: None (occurrence: None)
  Receive Date: 20100126
  Receipt Date: 20100126
  Transmission Date: 20100710
  Serious: Yes (Other)
  Sender: FDA-Public Use
  Company Number: None

PATIENT
  Age: 27 Month
  Sex: Female
  Weight: 11.3399 kg

DRUGS (2)
  1. TAMIFLU SUSPENSION 15MG/ML [Suspect]
     Indication: INFLUENZA
     Dosage: 2.4 ML OF 15/ML BID 047 PO (SUSPENSION)
     Route: 048
     Dates: start: 20091102, end: 20091106
  2. TAMIFLU [Concomitant]

REACTIONS (16)
  - ABDOMINAL PAIN [None]
  - ABNORMAL BEHAVIOUR [None]
  - DECREASED APPETITE [None]
  - DIZZINESS [None]
  - EMOTIONAL DISORDER [None]
  - GAIT DISTURBANCE [None]
  - HAEMATOCHEZIA [None]
  - HALLUCINATION [None]
  - HEADACHE [None]
  - INSOMNIA [None]
  - MEMORY IMPAIRMENT [None]
  - MENTAL DISORDER [None]
  - MOOD SWINGS [None]
  - NIGHTMARE [None]
  - SOMNOLENCE [None]
  - WEIGHT DECREASED [None]
